FAERS Safety Report 21785103 (Version 1)
Quarter: 2022Q4

REPORT INFORMATION
  Report Type: Spontaneous
  Country: GB (occurrence: GB)
  Receive Date: 20221227
  Receipt Date: 20221227
  Transmission Date: 20230112
  Serious: Yes (Other)
  Sender: FDA-Public Use
  Company Number: None

PATIENT
  Age: 70 Year
  Sex: Female

DRUGS (11)
  1. PACLITAXEL [Suspect]
     Active Substance: PACLITAXEL
     Indication: Chemotherapy
     Dosage: 80 MG
  2. CELECOXIB [Concomitant]
     Active Substance: CELECOXIB
  3. CITALOPRAM [Concomitant]
     Active Substance: CITALOPRAM HYDROBROMIDE
  4. DENOSUMAB [Concomitant]
     Active Substance: DENOSUMAB
  5. LANSOPRAZOLE [Concomitant]
     Active Substance: LANSOPRAZOLE
  6. METOCLOPRAMIDE [Concomitant]
     Active Substance: METOCLOPRAMIDE
  7. MORPHINE [Concomitant]
     Active Substance: MORPHINE
  8. ACETAMINOPHEN [Concomitant]
     Active Substance: ACETAMINOPHEN
  9. PREGABALIN [Concomitant]
     Active Substance: PREGABALIN
  10. RIVAROXABAN [Concomitant]
     Active Substance: RIVAROXABAN
  11. MORPHINE SULFATE [Concomitant]
     Active Substance: MORPHINE SULFATE

REACTIONS (2)
  - Flushing [Recovered/Resolved]
  - Dyspnoea [Recovered/Resolved]
